FAERS Safety Report 9214320 (Version 2)
Quarter: 2013Q2

REPORT INFORMATION
  Report Type: Spontaneous
  Country: US (occurrence: US)
  Receive Date: 20130405
  Receipt Date: 20130412
  Transmission Date: 20140414
  Serious: Yes (Hospitalization)
  Sender: FDA-Public Use
  Company Number: US-PFIZER INC-2013106766

PATIENT
  Age: 48 Year
  Sex: Female
  Weight: 104 kg

DRUGS (6)
  1. PROTONIX [Suspect]
     Indication: DYSPEPSIA
     Dosage: 40 MG, 3X/DAY
  2. PROTONIX [Suspect]
     Indication: ABDOMINAL DISCOMFORT
  3. DIOVAN HCT [Concomitant]
     Dosage: UNK
  4. AMLODIPINE [Concomitant]
     Dosage: UNK
  5. METOPROLOL [Concomitant]
     Dosage: UNK
  6. ALEVE [Concomitant]
     Dosage: UNK

REACTIONS (3)
  - Coronary artery disease [Unknown]
  - Feeling abnormal [Unknown]
  - Pain in extremity [Unknown]
